FAERS Safety Report 24528496 (Version 1)
Quarter: 2024Q4

REPORT INFORMATION
  Report Type: Report from Study
  Country: PR (occurrence: PR)
  Receive Date: 20241021
  Receipt Date: 20241021
  Transmission Date: 20250115
  Serious: Yes (Hospitalization)
  Sender: PFIZER
  Company Number: PR-PFIZER INC-202400239060

PATIENT
  Age: 65 Year
  Sex: Female

DRUGS (4)
  1. IBRANCE [Suspect]
     Active Substance: PALBOCICLIB
     Dosage: 100 MG, CYCLIC (100 MG TABLETS DAILY FOR 21 DAYS AND 7 DAYS OFF)
     Route: 048
     Dates: start: 20240706
  2. IBRANCE [Suspect]
     Active Substance: PALBOCICLIB
     Dosage: 100 MG, CYCLIC (ONE TABLET DAILY FOR 21 DAYS, REST 7 DAYS)
     Route: 048
     Dates: start: 20240706
  3. FASLODEX [Concomitant]
     Active Substance: FULVESTRANT
     Dosage: UNK
  4. XGEVA [Concomitant]
     Active Substance: DENOSUMAB
     Dosage: UNK

REACTIONS (4)
  - Platelet count decreased [Unknown]
  - White blood cell count decreased [Unknown]
  - Haemoglobin decreased [Unknown]
  - Heart rate increased [Unknown]
